FAERS Safety Report 10167777 (Version 1)
Quarter: 2014Q2

REPORT INFORMATION
  Report Type: Spontaneous
  Country: DE (occurrence: DE)
  Receive Date: 20140512
  Receipt Date: 20140512
  Transmission Date: 20141212
  Serious: Yes (Life-Threatening, Disabling)
  Sender: FDA-Public Use
  Company Number: DE-ASTRAZENECA-2014SE31324

PATIENT
  Sex: Female

DRUGS (2)
  1. PROPOFOL [Suspect]
     Route: 042
  2. NACL [Concomitant]
     Route: 042

REACTIONS (2)
  - Cardiac arrest [Unknown]
  - Medication error [Unknown]
